FAERS Safety Report 4814970-0 (Version None)
Quarter: 2005Q4

REPORT INFORMATION
  Report Type: 
  Country: None (occurrence: None)
  Receive Date: 20051028
  Receipt Date: 20051018
  Transmission Date: 20060501
  Serious: Yes (Hospitalization)
  Sender: FDA-Public Use
  Company Number: JP-JNJFOC-20051001244

PATIENT
  Age: 26 Year
  Sex: Male

DRUGS (11)
  1. RISPERDAL [Suspect]
     Route: 048
  2. RISPERDAL [Suspect]
     Route: 048
  3. RISPERDAL [Suspect]
     Route: 048
  4. RISPERDAL [Suspect]
     Indication: SCHIZOPHRENIA
     Route: 048
  5. QUETIAPINE FUMARATE [Suspect]
     Route: 048
  6. QUETIAPINE FUMARATE [Suspect]
     Indication: SLEEP DISORDER
     Route: 048
  7. ETIZOLAM [Concomitant]
     Indication: ANXIETY
     Route: 048
  8. FLUNITRAZEPAM [Concomitant]
     Route: 048
  9. TRIAZOLAM [Concomitant]
     Route: 048
  10. BIPERIDEN HYDROCHLORIDE TAB [Concomitant]
     Route: 048
  11. BIPERIDEN HYDROCHLORIDE TAB [Concomitant]
     Route: 048

REACTIONS (7)
  - CONVULSION [None]
  - DEHYDRATION [None]
  - FALL [None]
  - INADEQUATE DIET [None]
  - NEUROLEPTIC MALIGNANT SYNDROME [None]
  - OPEN WOUND [None]
  - PNEUMONIA [None]
